FAERS Safety Report 9820966 (Version 3)
Quarter: 2014Q1

REPORT INFORMATION
  Report Type: Spontaneous
  Country: US (occurrence: US)
  Receive Date: 20140116
  Receipt Date: 20140310
  Transmission Date: 20141002
  Serious: Yes (Death, Hospitalization)
  Sender: FDA-Public Use
  Company Number: US-ACTELION-A-US2014-93540

PATIENT
  Age: 47 Year
  Sex: Male

DRUGS (2)
  1. OPSUMIT [Suspect]
     Indication: COR PULMONALE CHRONIC
     Dosage: 10 MG, UNK
     Route: 048
     Dates: start: 20131224
  2. ADCIRCA [Concomitant]

REACTIONS (3)
  - Pneumonia [Fatal]
  - Pneumothorax [Fatal]
  - Renal failure [Unknown]
